FAERS Safety Report 6997262-3 (Version None)
Quarter: 2010Q3

REPORT INFORMATION
  Report Type: 
  Country: None (occurrence: None)
  Receive Date: 20100918
  Receipt Date: 20090918
  Transmission Date: 20110219
  Serious: No
  Sender: FDA-Public Use
  Company Number: US-WYE-H11132209

PATIENT
  Age: 41 Year
  Sex: Female
  Weight: 77.18 kg

DRUGS (5)
  1. PRISTIQ [Suspect]
     Indication: DEPRESSION
     Route: 048
  2. PRISTIQ [Suspect]
     Route: 048
  3. CELEBREX [Concomitant]
  4. LORAZEPAM [Concomitant]
  5. FUROSEMIDE [Concomitant]

REACTIONS (3)
  - ANGER [None]
  - DRUG INEFFECTIVE [None]
  - IRRITABILITY [None]
